FAERS Safety Report 5636497-9 (Version None)
Quarter: 2008Q1

REPORT INFORMATION
  Report Type: 
  Country: None (occurrence: None)
  Receive Date: 20080225
  Receipt Date: 20080214
  Transmission Date: 20080703
  Serious: Yes (Other)
  Sender: FDA-Public Use
  Company Number: JP-ELI_LILLY_AND_COMPANY-JP200711003718

PATIENT
  Sex: Male
  Weight: 63 kg

DRUGS (2)
  1. GEMCITABINE HCL [Suspect]
     Indication: LUNG ADENOCARCINOMA STAGE II
     Dosage: 1000 MG/M2, OTHER
     Route: 042
     Dates: start: 20070110, end: 20070921
  2. PREDONINE [Concomitant]
     Indication: RADIATION PNEUMONITIS
     Dosage: 20 MG, DAILY (1/D)
     Route: 048
     Dates: start: 20070130, end: 20070220

REACTIONS (3)
  - MALIGNANT NEOPLASM PROGRESSION [None]
  - MYELODYSPLASTIC SYNDROME [None]
  - RADIATION PNEUMONITIS [None]
